FAERS Safety Report 4429425-5 (Version None)
Quarter: 2004Q3

REPORT INFORMATION
  Report Type: 
  Country: None (occurrence: None)
  Receive Date: 20040816
  Receipt Date: 20040803
  Transmission Date: 20050211
  Serious: Yes (Hospitalization)
  Sender: FDA-Public Use
  Company Number: 2004045888

PATIENT
  Age: 63 Year
  Sex: Female
  Weight: 77 kg

DRUGS (4)
  1. ZITHROMAX [Suspect]
     Indication: FEBRILE INFECTION
     Dosage: 500 MG (1 IN 1 D), ORAL
     Route: 048
     Dates: start: 20040614, end: 20040615
  2. ZITHROMAX [Suspect]
     Indication: PARONYCHIA
     Dosage: 500 MG (1 IN 1 D), ORAL
     Route: 048
     Dates: start: 20040614, end: 20040615
  3. UREA (UREA) [Concomitant]
  4. NIFEDIPINE [Concomitant]

REACTIONS (2)
  - FACE OEDEMA [None]
  - FACIAL PALSY [None]
